FAERS Safety Report 8230776-7 (Version None)
Quarter: 2012Q1

REPORT INFORMATION
  Report Type: 
  Country: None (occurrence: None)
  Receive Date: 20120321
  Receipt Date: 20120309
  Transmission Date: 20120608
  Serious: Yes (Death)
  Sender: FDA-Public Use
  Company Number: JPI-P-011066

PATIENT
  Age: 20 Year
  Sex: Female
  Weight: 55.7924 kg

DRUGS (7)
  1. XYREM [Suspect]
     Indication: NARCOLEPSY
     Dosage: 7.5 GM (3.75,2 IN 1 D),ORAL ; 10 GM (5.25 GM,2 IN 1 D),ORAL
     Route: 048
     Dates: start: 20100528, end: 20100607
  2. XYREM [Suspect]
     Indication: NARCOLEPSY
     Dosage: 7.5 GM (3.75,2 IN 1 D),ORAL ; 10 GM (5.25 GM,2 IN 1 D),ORAL
     Route: 048
     Dates: start: 20050909
  3. HYDROCODONE BITARTRATE AND ACETAMINOPHEN [Concomitant]
  4. KETAMINE HCL [Concomitant]
  5. CYCLOBENZAPRINE HCL [Concomitant]
  6. ROPINIROLE [Concomitant]
  7. UNSPECIFIED DRUGS, MEDICAMENTS, AND BIOLOGICAL SUBSTANCES [Suspect]
     Indication: PRODUCT USED FOR UNKNOWN INDICATION
     Dates: end: 20100607

REACTIONS (9)
  - DIZZINESS [None]
  - UNRESPONSIVE TO STIMULI [None]
  - FEELING HOT [None]
  - TOXICITY TO VARIOUS AGENTS [None]
  - PERIPHERAL COLDNESS [None]
  - ACCIDENTAL POISONING [None]
  - FALL [None]
  - CARDIAC ARREST [None]
  - ACCIDENTAL DEATH [None]
